FAERS Safety Report 6924483-8 (Version None)
Quarter: 2010Q3

REPORT INFORMATION
  Report Type: 
  Country: None (occurrence: None)
  Receive Date: 20100815
  Receipt Date: 20100805
  Transmission Date: 20110219
  Serious: Yes (Hospitalization)
  Sender: FDA-Public Use
  Company Number: US-ABBOTT-10P-163-0661733-00

PATIENT
  Sex: Female
  Weight: 57.658 kg

DRUGS (10)
  1. HUMIRA [Suspect]
     Indication: CROHN'S DISEASE
     Route: 050
     Dates: start: 20091217, end: 20091217
  2. HUMIRA [Suspect]
     Route: 050
     Dates: start: 20091231, end: 20091231
  3. HUMIRA [Suspect]
     Route: 050
     Dates: start: 20100101, end: 20100614
  4. PRENATAL VITAMINS [Concomitant]
     Indication: PRODUCT USED FOR UNKNOWN INDICATION
     Route: 048
     Dates: start: 20091015, end: 20100614
  5. PENTASA [Concomitant]
     Indication: CROHN'S DISEASE
     Route: 048
     Dates: start: 20090902, end: 20100614
  6. FLAGYL [Concomitant]
     Indication: FISTULA
     Route: 048
     Dates: start: 20091001, end: 20091008
  7. H1N1 2009 INFLUENZA VACCINE [Concomitant]
     Indication: H1N1 INFLUENZA
     Route: 050
     Dates: start: 20091110, end: 20091110
  8. TYLENOL-500 [Concomitant]
     Indication: HEADACHE
     Dosage: PM
     Route: 048
     Dates: start: 20091001, end: 20100614
  9. ANESTHESIA ANY NOS [Concomitant]
     Indication: FISTULA
     Route: 008
     Dates: start: 20091008, end: 20091008
  10. IRON [Concomitant]
     Indication: PRODUCT USED FOR UNKNOWN INDICATION
     Route: 048
     Dates: start: 20100401, end: 20100614

REACTIONS (2)
  - DRUG EXPOSURE DURING PREGNANCY [None]
  - FISTULA [None]
